FAERS Safety Report 10580300 (Version 5)
Quarter: 2015Q1

REPORT INFORMATION
  Report Type: Spontaneous
  Country: DK (occurrence: DK)
  Receive Date: 20141112
  Receipt Date: 20150112
  Transmission Date: 20150720
  Serious: Yes (Disabling)
  Sender: FDA-Public Use
  Company Number: ALCN2014DK006274

PATIENT
  Age: 66 Year
  Sex: Male

DRUGS (4)
  1. VANCOMYCIN [Concomitant]
     Active Substance: VANCOMYCIN
     Indication: POSTOPERATIVE CARE
     Dosage: UNK
  2. FORTUM                                  /UNK/ [Concomitant]
     Indication: POSTOPERATIVE CARE
     Dosage: UNK
  3. APROKAM [Concomitant]
     Active Substance: CEFUROXIME SODIUM
     Dosage: 1 DF, ONCE/SINGLE
     Route: 065
  4. NEVANAC [Suspect]
     Active Substance: NEPAFENAC
     Indication: POSTOPERATIVE CARE
     Dosage: UNK
     Route: 047

REACTIONS (3)
  - Enterococcal infection [Not Recovered/Not Resolved]
  - Blindness [Not Recovered/Not Resolved]
  - Endophthalmitis [Not Recovered/Not Resolved]
